FAERS Safety Report 8578063-1 (Version None)
Quarter: 2012Q3

REPORT INFORMATION
  Report Type: 
  Country: None (occurrence: None)
  Receive Date: 20120808
  Receipt Date: 20120806
  Transmission Date: 20120928
  Serious: Yes (Other)
  Sender: FDA-Public Use
  Company Number: PHFR2012GB004339

PATIENT
  Sex: Male

DRUGS (2)
  1. CLOZARIL [Suspect]
     Indication: SCHIZOPHRENIA
     Dosage: 700 MG
     Route: 048
     Dates: start: 20040531
  2. CLOZARIL [Suspect]
     Dosage: 600 MG

REACTIONS (1)
  - HEPATITIS C [None]
